FAERS Safety Report 9811671 (Version 3)
Quarter: 2015Q4

REPORT INFORMATION
  Report Type: Spontaneous
  Country: US (occurrence: US)
  Receive Date: 20140110
  Receipt Date: 20151228
  Transmission Date: 20160305
  Serious: Yes (Hospitalization, Other)
  Sender: FDA-Public Use
  Company Number: US-SANOFI-AVENTIS-2013SA049183

PATIENT
  Age: 74 Year
  Sex: Male
  Weight: 108 kg

DRUGS (35)
  1. AVODART [Concomitant]
     Active Substance: DUTASTERIDE
     Dosage: 0.5 MG
     Route: 048
     Dates: start: 20100320, end: 20100419
  2. AGGRENOX [Concomitant]
     Active Substance: ASPIRIN\DIPYRIDAMOLE
     Dosage: DOSE:25/200 MG
     Route: 048
     Dates: start: 20100320, end: 20100419
  3. DEMEROL [Concomitant]
     Active Substance: MEPERIDINE HYDROCHLORIDE
     Route: 042
     Dates: start: 20100413, end: 20100413
  4. SODIUM CHLORIDE. [Concomitant]
     Active Substance: SODIUM CHLORIDE
     Dosage: 0.9%
     Route: 042
     Dates: start: 20100320, end: 20100419
  5. PLAVIX [Suspect]
     Active Substance: CLOPIDOGREL BISULFATE
     Indication: CORONARY ARTERY BYPASS
     Route: 048
     Dates: start: 1997, end: 20101105
  6. ARICEPT [Concomitant]
     Active Substance: DONEPEZIL HYDROCHLORIDE
     Route: 048
  7. ASPIRIN. [Concomitant]
     Active Substance: ASPIRIN
     Dosage: DAILY WITH BREAKFAST
     Route: 048
     Dates: start: 20100330, end: 20100419
  8. AVELOX [Concomitant]
     Active Substance: MOXIFLOXACIN HYDROCHLORIDE
     Route: 042
     Dates: start: 20100320, end: 20100330
  9. ZOSYN [Concomitant]
     Active Substance: PIPERACILLIN SODIUM\TAZOBACTAM SODIUM
     Dosage: FROZEN
     Route: 042
     Dates: start: 20100403, end: 20100421
  10. PHENERGAN [Concomitant]
     Active Substance: PROMETHAZINE HYDROCHLORIDE
     Indication: VOMITING
     Dosage: 12.5 MG-0.5 ML EVERY 3 HOURS AS NEEDED
     Route: 042
     Dates: start: 20100401, end: 20100501
  11. PERCOCET [Concomitant]
     Active Substance: ACETAMINOPHEN\OXYCODONE HYDROCHLORIDE
     Dosage: 2  COMBO   (2  UDTAB)  EVER?Y   4. HOURS   AS   NEEDED
     Route: 048
     Dates: start: 20100416, end: 20100423
  12. LISINOPRIL. [Concomitant]
     Active Substance: LISINOPRIL
     Route: 048
     Dates: start: 20100320, end: 20100419
  13. PRILOSEC [Concomitant]
     Active Substance: OMEPRAZOLE MAGNESIUM
     Route: 048
     Dates: start: 20100302, end: 20100502
  14. NYSTOP [Concomitant]
     Active Substance: NYSTATIN
     Dosage: FORM: POWDER?APPLY TO GROIN
     Route: 061
     Dates: start: 20100302, end: 20100502
  15. PHENERGAN [Concomitant]
     Active Substance: PROMETHAZINE HYDROCHLORIDE
     Indication: NAUSEA
     Dosage: 12.5 MG-0.5 ML EVERY 3 HOURS AS NEEDED
     Route: 042
     Dates: start: 20100401, end: 20100501
  16. CEPACOL [Concomitant]
     Active Substance: BENZOCAINE
     Dosage: EVERY   3 HOURS   AS   NEEDED
     Dates: start: 20100406, end: 20100506
  17. PLAVIX [Suspect]
     Active Substance: CLOPIDOGREL BISULFATE
     Indication: MYOCARDIAL INFARCTION
     Route: 048
     Dates: start: 1997, end: 20101105
  18. VANCOMYCIN [Concomitant]
     Active Substance: VANCOMYCIN
     Route: 042
  19. ROBITUSSIN (GUAIFENESIN) [Concomitant]
     Active Substance: GUAIFENESIN
     Dosage: 200MG-5ML 2 DOSE EVERY  8  HOURS   AS   NEEDED
     Route: 048
     Dates: start: 20100406, end: 20100506
  20. FLOMAX [Concomitant]
     Active Substance: TAMSULOSIN HYDROCHLORIDE
  21. GLYBURIDE. [Concomitant]
     Active Substance: GLYBURIDE
     Route: 048
  22. SIMVASTATIN. [Concomitant]
     Active Substance: SIMVASTATIN
     Route: 048
  23. DUONEB [Concomitant]
     Active Substance: ALBUTEROL SULFATE\IPRATROPIUM BROMIDE
     Dates: start: 20100301, end: 20100501
  24. SODIUM CHLORIDE. [Concomitant]
     Active Substance: SODIUM CHLORIDE
     Route: 042
     Dates: start: 20100403, end: 20100421
  25. HEPARIN [Concomitant]
     Active Substance: HEPARIN SODIUM
     Dosage: LOCK 110UNITS/ML
     Route: 042
     Dates: start: 20100401, end: 20100501
  26. MEPERIDINE [Concomitant]
     Active Substance: MEPERIDINE
     Dosage: 25  MG-0.5  ML   (1  AMP)
     Route: 042
     Dates: start: 20100409, end: 20100416
  27. PLAVIX [Suspect]
     Active Substance: CLOPIDOGREL BISULFATE
     Indication: CEREBROVASCULAR ACCIDENT
     Route: 048
     Dates: start: 1997, end: 20101105
  28. ATENOLOL. [Concomitant]
     Active Substance: ATENOLOL
     Route: 048
     Dates: start: 20100320, end: 20100419
  29. SODIUM CHLORIDE. [Concomitant]
     Active Substance: SODIUM CHLORIDE
     Route: 042
     Dates: start: 20100413, end: 20100515
  30. LOPRESSOR [Concomitant]
     Active Substance: METOPROLOL TARTRATE
     Route: 048
     Dates: start: 20100412, end: 20100512
  31. ZOCOR [Concomitant]
     Active Substance: SIMVASTATIN
  32. METFORMIN [Concomitant]
     Active Substance: METFORMIN HYDROCHLORIDE
     Route: 048
  33. TYLENOL [Concomitant]
     Active Substance: ACETAMINOPHEN
     Route: 048
     Dates: start: 20100320, end: 20100410
  34. IMODIUM [Concomitant]
     Active Substance: LOPERAMIDE HYDROCHLORIDE
  35. NOVOLIN [Concomitant]
     Active Substance: INSULIN HUMAN
     Dosage: BEFORE MEALS AND AT BEDTIME
     Route: 058
     Dates: start: 20100402, end: 20100502

REACTIONS (4)
  - Gastric ulcer [Unknown]
  - Internal haemorrhage [Unknown]
  - Haematemesis [Unknown]
  - Upper gastrointestinal haemorrhage [Unknown]

NARRATIVE: CASE EVENT DATE: 20100423
